FAERS Safety Report 7478429-7 (Version None)
Quarter: 2011Q2

REPORT INFORMATION
  Report Type: 
  Country: None (occurrence: None)
  Receive Date: 20110513
  Receipt Date: 20110511
  Transmission Date: 20111010
  Serious: Yes (Other)
  Sender: FDA-Public Use
  Company Number: US-PFIZER INC-2004063398

PATIENT
  Sex: Female

DRUGS (3)
  1. NEURONTIN [Suspect]
     Indication: NEUROPATHY PERIPHERAL
     Dosage: UNK
     Dates: start: 19980101, end: 20080101
  2. NEURONTIN [Suspect]
     Indication: PAIN
  3. NEURONTIN [Suspect]
     Indication: RESTLESS LEGS SYNDROME

REACTIONS (13)
  - HALLUCINATION [None]
  - PHYSICAL ASSAULT [None]
  - AGGRESSION [None]
  - MEMORY IMPAIRMENT [None]
  - INJURY [None]
  - DEPRESSION [None]
  - ANXIETY [None]
  - ANGER [None]
  - BALANCE DISORDER [None]
  - SUICIDAL IDEATION [None]
  - PARANOIA [None]
  - EMOTIONAL DISTRESS [None]
  - BRADYPHRENIA [None]
